FAERS Safety Report 13513705 (Version 2)
Quarter: 2017Q2

REPORT INFORMATION
  Report Type: Spontaneous
  Country: PT (occurrence: PT)
  Receive Date: 20170504
  Receipt Date: 20170522
  Transmission Date: 20170830
  Serious: Yes (Other)
  Sender: FDA-Public Use
  Company Number: PT-ACCORD-051147

PATIENT
  Age: 15 Year
  Sex: Female

DRUGS (1)
  1. ITRACONAZOLE. [Suspect]
     Active Substance: ITRACONAZOLE
     Indication: TRICHOPHYTOSIS

REACTIONS (2)
  - Dyspepsia [Recovered/Resolved]
  - Alopecia scarring [Recovered/Resolved]
